FAERS Safety Report 10971418 (Version 1)
Quarter: 2015Q1

REPORT INFORMATION
  Report Type: Spontaneous
  Country: US (occurrence: US)
  Receive Date: 20150331
  Receipt Date: 20150331
  Transmission Date: 20150721
  Serious: Yes (Other)
  Sender: FDA-Public Use
  Company Number: US-PFIZER INC-2015108571

PATIENT
  Sex: Female

DRUGS (1)
  1. LYRICA [Suspect]
     Active Substance: PREGABALIN
     Indication: FIBROMYALGIA
     Dosage: UNK

REACTIONS (6)
  - Neurological symptom [Unknown]
  - Fall [Unknown]
  - Meningitis [Recovered/Resolved]
  - Peroneal nerve palsy [Recovered/Resolved]
  - Seizure [Unknown]
  - Periorbital contusion [Unknown]
